FAERS Safety Report 8877503 (Version 1)
Quarter: 2012Q4

REPORT INFORMATION
  Report Type: 
  Country: AU (occurrence: AU)
  Receive Date: 20121024
  Receipt Date: 20121024
  Transmission Date: 20130627
  Serious: Yes (Other)
  Sender: FDA-Public Use
  Company Number: AU-PFIZER INC-2012228813

PATIENT
  Sex: Female

DRUGS (3)
  1. EFEXOR XR [Suspect]
     Dosage: UNK
  2. LEXAPRO [Suspect]
     Dosage: UNK
  3. CIPRAMIL [Suspect]
     Dosage: UNK

REACTIONS (2)
  - Pharyngeal oedema [Unknown]
  - Alopecia [Unknown]
